FAERS Safety Report 21128935 (Version 4)
Quarter: 2022Q4

REPORT INFORMATION
  Report Type: Report from Study
  Country: DE (occurrence: DE)
  Receive Date: 20220725
  Receipt Date: 20221108
  Transmission Date: 20230112
  Serious: Yes (Hospitalization, Other)
  Sender: FDA-Public Use
  Company Number: DE-JNJFOC-20220601038

PATIENT
  Age: 7 Decade
  Sex: Male
  Weight: 91 kg

DRUGS (20)
  1. TADALAFIL [Suspect]
     Active Substance: TADALAFIL
     Indication: Pulmonary arterial hypertension
     Dosage: 40 MILLIGRAM
     Route: 048
     Dates: start: 20220701
  2. TADALAFIL [Suspect]
     Active Substance: TADALAFIL
     Dosage: 40 MILLIGRAM
     Route: 048
     Dates: start: 20220217, end: 20220629
  3. TADALAFIL [Suspect]
     Active Substance: TADALAFIL
     Dosage: 20 MILLIGRAM
     Route: 048
  4. MACITENTAN [Suspect]
     Active Substance: MACITENTAN
     Indication: Pulmonary arterial hypertension
     Dosage: 10 MILLIGRAM
     Route: 048
     Dates: start: 20220519
  5. SELEXIPAG [Suspect]
     Active Substance: SELEXIPAG
     Indication: Pulmonary arterial hypertension
     Dosage: UNK
     Route: 048
     Dates: start: 20220706
  6. SELEXIPAG [Suspect]
     Active Substance: SELEXIPAG
     Dosage: UNK, BID
     Route: 048
  7. ATORVASTATIN [Concomitant]
     Active Substance: ATORVASTATIN
     Dosage: 20 MILLIGRAM
     Route: 048
  8. TIOTROPIUM [Concomitant]
     Active Substance: TIOTROPIUM
     Indication: Chronic obstructive pulmonary disease
     Dosage: UNK
  9. METFORMIN [Concomitant]
     Active Substance: METFORMIN HYDROCHLORIDE
     Indication: Type 2 diabetes mellitus
     Dosage: UNK
     Route: 048
  10. ELIQUIS [Concomitant]
     Active Substance: APIXABAN
     Indication: Anticoagulant therapy
     Dosage: UNK
     Route: 048
  11. ASPIRIN [Concomitant]
     Active Substance: ASPIRIN
     Indication: Anticoagulant therapy
     Dosage: UNK
     Route: 048
     Dates: start: 20220823
  12. XIPAMIDE [Concomitant]
     Active Substance: XIPAMIDE
     Indication: Diuretic therapy
     Dosage: 10 MILLIGRAM
     Route: 048
     Dates: start: 20220624
  13. PANTOPRAZOLE [Concomitant]
     Active Substance: PANTOPRAZOLE
     Indication: Prophylaxis
     Dosage: UNK
     Route: 048
  14. BISOPROLOL [Concomitant]
     Active Substance: BISOPROLOL
     Indication: Blood pressure measurement
     Dosage: UNK
     Route: 048
  15. ALLOPURINOL [Concomitant]
     Active Substance: ALLOPURINOL
     Dosage: UNK
     Route: 048
  16. TORSEMIDE [Concomitant]
     Active Substance: TORSEMIDE
     Indication: Diuretic therapy
     Dosage: UNK
     Route: 048
  17. RAMIPRIL [Concomitant]
     Active Substance: RAMIPRIL
     Indication: Cardiac failure
     Dosage: 2.5 MILLIGRAM
     Route: 048
     Dates: start: 20220701
  18. RIOCIGUAT [Concomitant]
     Active Substance: RIOCIGUAT
     Indication: Pulmonary arterial hypertension
     Dosage: 30 MILLIGRAM
     Route: 065
     Dates: start: 20220629, end: 20220701
  19. UPTRAVI [Concomitant]
     Active Substance: SELEXIPAG
     Dosage: 400 MICROGRAM
     Route: 048
     Dates: start: 20220706
  20. METAMIZOLE [Concomitant]
     Active Substance: METAMIZOLE
     Indication: Pain
     Dosage: UNK
     Route: 048
     Dates: start: 20220823

REACTIONS (6)
  - Pulmonary arterial hypertension [Recovered/Resolved]
  - Cardiac failure [Recovering/Resolving]
  - Renal impairment [Unknown]
  - Pulmonary congestion [Unknown]
  - Fluid retention [Unknown]
  - Abdominal distension [Unknown]

NARRATIVE: CASE EVENT DATE: 20220528
